FAERS Safety Report 9779416 (Version 2)
Quarter: 2013Q4

REPORT INFORMATION
  Report Type: Spontaneous
  Country: US (occurrence: US)
  Receive Date: 20131223
  Receipt Date: 20131230
  Transmission Date: 20140711
  Serious: Yes (Congenital Anomaly, Other)
  Sender: FDA-Public Use
  Company Number: US-PFIZER INC-2013363920

PATIENT
  Sex: Female

DRUGS (5)
  1. ZOLOFT [Suspect]
     Dosage: UNK
     Route: 064
     Dates: start: 20100315, end: 20110126
  2. SERTRALINE HCL [Suspect]
     Dosage: UNK
     Route: 064
  3. SYNTHROID [Concomitant]
     Dosage: UNK
     Route: 064
  4. INSULIN [Concomitant]
     Dosage: UNK
     Route: 064
     Dates: start: 201010, end: 201101
  5. PRENATAL VITAMINS [Concomitant]
     Dosage: UNK
     Route: 064

REACTIONS (9)
  - Maternal exposure during pregnancy [Unknown]
  - Posterior segment of eye anomaly congenital [Unknown]
  - Microphthalmos [Unknown]
  - Strabismus [Unknown]
  - Pupils unequal [Unknown]
  - VIIth nerve paralysis [Unknown]
  - Protuberant ear [Unknown]
  - Congenital nose malformation [Unknown]
  - Nose deformity [Unknown]
